FAERS Safety Report 5906790-0 (Version None)
Quarter: 2008Q3

REPORT INFORMATION
  Report Type: 
  Country: None (occurrence: None)
  Receive Date: 20080929
  Receipt Date: 20080916
  Transmission Date: 20090109
  Serious: Yes (Other)
  Sender: FDA-Public Use
  Company Number: 2008-183786-NL

PATIENT
  Sex: Female

DRUGS (1)
  1. NUVARING [Suspect]

REACTIONS (2)
  - DRUG EXPOSURE DURING PREGNANCY [None]
  - ECTOPIC PREGNANCY [None]
